FAERS Safety Report 19071223 (Version 1)
Quarter: 2021Q1

REPORT INFORMATION
  Report Type: Spontaneous
  Country: GB (occurrence: GB)
  Receive Date: 20210330
  Receipt Date: 20210330
  Transmission Date: 20210420
  Serious: Yes (Other)
  Sender: FDA-Public Use
  Company Number: GB-AUROBINDO-AUR-APL-2021-012003

PATIENT
  Age: 71 Year
  Sex: Female
  Weight: 64.87 kg

DRUGS (6)
  1. RIVAROXABAN [Concomitant]
     Active Substance: RIVAROXABAN
     Indication: THROMBOPHLEBITIS SUPERFICIAL
     Dosage: 1 DOSAGE FORM, TWO TIMES A DAY (TOTAL 12 WEEKS, STOP 5/5/21)
     Route: 065
     Dates: start: 20210125
  2. COVID?19 VACCINE [Concomitant]
     Indication: COVID-19 IMMUNISATION
     Dosage: 1 DOSAGE FORM
     Route: 030
     Dates: start: 20210210, end: 20210210
  3. CLARITHROMYCIN. [Concomitant]
     Active Substance: CLARITHROMYCIN
     Indication: PRODUCT USED FOR UNKNOWN INDICATION
     Dosage: 500 MILLIGRAM, TWO TIMES A DAY
     Route: 065
     Dates: start: 20210106, end: 20210204
  4. AMLODIPINE [Concomitant]
     Active Substance: AMLODIPINE BESYLATE
     Indication: THROMBOPHLEBITIS SUPERFICIAL
     Dosage: 1 DOSAGE FORM, ONCE A DAY
     Route: 065
     Dates: start: 20210125, end: 20210211
  5. FENBID [Concomitant]
     Active Substance: IBUPROFEN
     Indication: PAIN IN EXTREMITY
     Dosage: 100 GRAM (APPLY THREE OR FOUR TIMES A DAY)
     Route: 065
     Dates: start: 20210118, end: 20210302
  6. AMLODIPINE [Suspect]
     Active Substance: AMLODIPINE BESYLATE
     Indication: THROMBOPHLEBITIS SUPERFICIAL
     Dosage: 1 DOSAGE FORM, ONCE A DAY
     Route: 065
     Dates: start: 20210304

REACTIONS (2)
  - Flushing [Unknown]
  - Tachycardia [Unknown]

NARRATIVE: CASE EVENT DATE: 20210312
